FAERS Safety Report 7469343-1 (Version None)
Quarter: 2011Q2

REPORT INFORMATION
  Report Type: 
  Country: None (occurrence: None)
  Receive Date: 20110506
  Receipt Date: 20110506
  Transmission Date: 20111010
  Serious: Yes (Other)
  Sender: FDA-Public Use
  Company Number: None

PATIENT
  Sex: Male
  Weight: 83.9154 kg

DRUGS (7)
  1. KLONOPIN [Concomitant]
  2. SEROQUEL [Concomitant]
  3. ELAVIL [Concomitant]
  4. PROCHLORPERAZINE EDISYLATE INJ [Suspect]
     Indication: VOMITING
     Dosage: 10 MG Q6H PRN IV
     Route: 042
     Dates: start: 20110504, end: 20110505
  5. PROCHLORPERAZINE EDISYLATE INJ [Suspect]
     Indication: NAUSEA
     Dosage: 10 MG Q6H PRN IV
     Route: 042
     Dates: start: 20110504, end: 20110505
  6. SOMA [Concomitant]
  7. DILAUDID [Concomitant]

REACTIONS (4)
  - ILL-DEFINED DISORDER [None]
  - FEELING ABNORMAL [None]
  - SPEECH DISORDER [None]
  - MUSCULOSKELETAL STIFFNESS [None]
